FAERS Safety Report 9286777 (Version 1)
Quarter: 2013Q2

REPORT INFORMATION
  Report Type: Spontaneous
  Country: TH (occurrence: TH)
  Receive Date: 20130513
  Receipt Date: 20130513
  Transmission Date: 20140414
  Serious: Yes (Other)
  Sender: FDA-Public Use
  Company Number: TH-UCBSA-085420

PATIENT
  Age: 40 Year
  Sex: 0

DRUGS (4)
  1. KEPPRA [Suspect]
     Indication: EPILEPSY
     Dates: end: 201304
  2. DEPAKINE [Concomitant]
     Dates: end: 201304
  3. TOPAMAX [Concomitant]
     Dates: end: 201304
  4. NEURONTIN [Concomitant]

REACTIONS (1)
  - Dermatitis exfoliative [Unknown]
